FAERS Safety Report 12991097 (Version 1)
Quarter: 2016Q4

REPORT INFORMATION
  Report Type: Spontaneous
  Country: FR (occurrence: FR)
  Receive Date: 20161201
  Receipt Date: 20161201
  Transmission Date: 20170207
  Serious: Yes (Disabling)
  Sender: FDA-Public Use
  Company Number: FR-TEVA-713980ROM

PATIENT
  Age: 37 Year
  Sex: Female

DRUGS (6)
  1. LEELOO 0.1 MG/0.02 MG [Suspect]
     Active Substance: ETHINYL ESTRADIOL\LEVONORGESTREL
     Indication: CONTRACEPTION
     Dosage: 1 DOSAGE FORMS DAILY;
     Route: 048
  2. ALPRAZOLAM. [Suspect]
     Active Substance: ALPRAZOLAM
     Dosage: .125 MILLIGRAM DAILY;
     Route: 048
  3. FLUARIX 2011/2012 [Suspect]
     Active Substance: INFLUENZA A VIRUS A/CALIFORNIA/7/2009 X-181 (H1N1) ANTIGEN (FORMALDEHYDE INACTIVATED)\INFLUENZA A VIRUS A/VICTORIA/210/2009 X-187 (H3N2) ANTIGEN (FORMALDEHYDE INACTIVATED)\INFLUENZA B VIRUS B/BRISBANE/60/2008 ANTIGEN (FORMALDEHYDE INACTIVATED)\INFLUENZA VIRUS VACCINE
     Indication: ANTIVIRAL PROPHYLAXIS
     Dosage: 1 DOSAGE FORMS DAILY;
     Route: 030
     Dates: start: 20141103, end: 20141103
  4. GRANIONS DE LITHIUM 1 MG/2 ML [Suspect]
     Active Substance: LITHIUM CITRATE
     Dosage: 2 DOSAGE FORMS DAILY;
     Route: 048
  5. PYRIDOXINE [Suspect]
     Active Substance: PYRIDOXINE
     Route: 048
  6. MAGNESIUM [Suspect]
     Active Substance: MAGNESIUM
     Route: 048

REACTIONS (5)
  - Cough [Recovered/Resolved]
  - Myalgia [Not Recovered/Not Resolved]
  - Muscular weakness [Not Recovered/Not Resolved]
  - Pyrexia [Recovered/Resolved]
  - Chills [Recovered/Resolved]

NARRATIVE: CASE EVENT DATE: 20141110
